FAERS Safety Report 24344614 (Version 1)
Quarter: 2024Q3

REPORT INFORMATION
  Report Type: Spontaneous
  Country: US (occurrence: US)
  Receive Date: 20240920
  Receipt Date: 20240920
  Transmission Date: 20241017
  Serious: Yes (Other)
  Sender: ADMA BIOLOGICS
  Company Number: US-ADMA BIOLOGICS INC.-US-2024ADM000118

PATIENT
  Age: 2 Month
  Sex: Male

DRUGS (3)
  1. HUMAN IMMUNOGLOBULIN G [Suspect]
     Active Substance: HUMAN IMMUNOGLOBULIN G
     Indication: Cardiac failure
     Dosage: 2 GRAM PER KILOGRAM, UNK
     Route: 042
  2. HUMAN IMMUNOGLOBULIN G [Suspect]
     Active Substance: HUMAN IMMUNOGLOBULIN G
     Dosage: UNK, UNK
     Route: 042
  3. DEXAMETHASONE [Suspect]
     Active Substance: DEXAMETHASONE
     Indication: Cardiac failure
     Dosage: UNK, UNK
     Route: 065

REACTIONS (9)
  - Pseudomonas infection [Recovered/Resolved]
  - Coronary artery aneurysm [Unknown]
  - Carotid artery aneurysm [Unknown]
  - Cardiac aneurysm [Unknown]
  - Coeliac artery aneurysm [Unknown]
  - Mesenteric artery aneurysm [Unknown]
  - Aortic disorder [Unknown]
  - Renal aneurysm [Unknown]
  - Off label use [Unknown]
